FAERS Safety Report 6716209-8 (Version None)
Quarter: 2010Q2

REPORT INFORMATION
  Report Type: 
  Country: None (occurrence: None)
  Receive Date: 20100507
  Receipt Date: 20100427
  Transmission Date: 20101027
  Serious: Yes (Other)
  Sender: FDA-Public Use
  Company Number: FR-PFIZER INC-2010055324

PATIENT

DRUGS (1)
  1. SERTRALINE HCL [Suspect]

REACTIONS (2)
  - CEREBRAL VASOCONSTRICTION [None]
  - HEADACHE [None]
